FAERS Safety Report 11796162 (Version 2)
Quarter: 2016Q3

REPORT INFORMATION
  Report Type: Spontaneous
  Country: CA (occurrence: CA)
  Receive Date: 20151203
  Receipt Date: 20160802
  Transmission Date: 20161109
  Serious: No
  Sender: FDA-Public Use
  Company Number: CA-GLENMARK PHARMACEUTICALS INC, USA.-2015GMK015024

PATIENT
  Age: 7 Year
  Sex: Male

DRUGS (4)
  1. PRAMIPEXOLE. [Suspect]
     Active Substance: PRAMIPEXOLE
     Indication: ATTENTION DEFICIT/HYPERACTIVITY DISORDER
  2. PRAMIPEXOLE. [Suspect]
     Active Substance: PRAMIPEXOLE
     Indication: AGGRESSION
  3. PRAMIPEXOLE. [Suspect]
     Active Substance: PRAMIPEXOLE
     Indication: ABNORMAL BEHAVIOUR
     Dosage: UNK
  4. PRAMIPEXOLE. [Suspect]
     Active Substance: PRAMIPEXOLE
     Indication: DYSPHEMIA

REACTIONS (2)
  - Therapeutic response unexpected [Unknown]
  - Off label use [Unknown]
